FAERS Safety Report 24223394 (Version 1)
Quarter: 2024Q3

REPORT INFORMATION
  Report Type: Spontaneous
  Country: US (occurrence: None)
  Receive Date: 20240816
  Receipt Date: 20240816
  Transmission Date: 20241017
  Serious: Yes (unspecified)
  Sender: Public
  Company Number: None

PATIENT
  Age: 82 Year
  Sex: Female
  Weight: 61.23 kg

DRUGS (9)
  1. LEVOFLOXACIN [Suspect]
     Active Substance: LEVOFLOXACIN
     Indication: Pneumonia
     Dosage: 1 PILL TWICE DAILY BY MOUTH
     Route: 048
     Dates: start: 20240213, end: 20240223
  2. CIPROFLOXACIN [Suspect]
     Active Substance: CIPROFLOXACIN
  3. SULFAMETHOXAZOLE\TRIMETHOPRIM [Suspect]
     Active Substance: SULFAMETHOXAZOLE\TRIMETHOPRIM
  4. Metoprol Suc [Concomitant]
  5. LISINOPRIL [Concomitant]
     Active Substance: LISINOPRIL
  6. One A Day Adult Triple Immune Support [Concomitant]
  7. Eye Defense Formula [Concomitant]
  8. VITAMIN B COMPLEX [Concomitant]
     Active Substance: CYANOCOBALAMIN\DEXPANTHENOL\NIACINAMIDE\PYRIDOXINE HYDROCHLORIDE\RIBOFLAVIN 5^-PHOSPHATE SODIUM\THIA
  9. VITAMIN C [Concomitant]
     Active Substance: ASCORBIC ACID

REACTIONS (9)
  - Malaise [None]
  - Vomiting [None]
  - Diarrhoea [None]
  - Tremor [None]
  - Pain [None]
  - Hypoaesthesia [None]
  - Hypoaesthesia oral [None]
  - Dizziness [None]
  - Confusional state [None]

NARRATIVE: CASE EVENT DATE: 20240213
